FAERS Safety Report 7252195-2 (Version None)
Quarter: 2011Q1

REPORT INFORMATION
  Report Type: 
  Country: None (occurrence: None)
  Receive Date: 20110129
  Receipt Date: 20100413
  Transmission Date: 20110831
  Serious: No
  Sender: FDA-Public Use
  Company Number: US-ABBOTT-10P-163-0639281-00

PATIENT
  Sex: Female

DRUGS (5)
  1. NEXIUM [Concomitant]
     Indication: GASTROOESOPHAGEAL REFLUX DISEASE
  2. DIOVAN [Concomitant]
     Indication: HYPERTENSION
  3. TRANXENE [Concomitant]
     Indication: ANXIETY
  4. HUMIRA [Suspect]
     Indication: PSORIASIS
     Dates: start: 20091123, end: 20100403
  5. PAXIL [Concomitant]
     Indication: ANXIETY

REACTIONS (5)
  - FEELING COLD [None]
  - FATIGUE [None]
  - BLOOD BLISTER [None]
  - OEDEMA PERIPHERAL [None]
  - CONTUSION [None]
